FAERS Safety Report 10537703 (Version 1)
Quarter: 2014Q4

REPORT INFORMATION
  Report Type: Spontaneous
  Country: FR (occurrence: FR)
  Receive Date: 20141023
  Receipt Date: 20141023
  Transmission Date: 20150529
  Serious: Yes (Hospitalization)
  Sender: FDA-Public Use
  Company Number: FR-ABBVIE-14P-056-1299159-00

PATIENT
  Age: 69 Year
  Sex: Male

DRUGS (10)
  1. AUGMENTIN [Suspect]
     Active Substance: AMOXICILLIN\CLAVULANATE POTASSIUM
     Indication: SEPTIC SHOCK
     Route: 042
     Dates: start: 20140818, end: 20140820
  2. SODIUM HEPARIN [Suspect]
     Active Substance: HEPARIN SODIUM
     Indication: PRODUCT USED FOR UNKNOWN INDICATION
     Route: 042
     Dates: start: 201408, end: 20140904
  3. TAVANIC [Suspect]
     Active Substance: LEVOFLOXACIN
     Indication: SEPTIC SHOCK
     Route: 042
     Dates: start: 20140818, end: 20140819
  4. NOREPINEPHRINE [Suspect]
     Active Substance: NOREPINEPHRINE\NOREPINEPHRINE BITARTRATE
     Indication: PRODUCT USED FOR UNKNOWN INDICATION
     Route: 042
     Dates: start: 201408, end: 201408
  5. LASILIX [Suspect]
     Active Substance: FUROSEMIDE
     Indication: PRODUCT USED FOR UNKNOWN INDICATION
     Route: 042
     Dates: start: 201408, end: 201408
  6. VANCOMYCIN [Suspect]
     Active Substance: VANCOMYCIN
     Indication: SEPTIC SHOCK
     Route: 042
     Dates: start: 20140820, end: 20140825
  7. ZECLAR 0.5 G [Suspect]
     Active Substance: CLARITHROMYCIN
     Indication: SEPTIC SHOCK
     Route: 042
     Dates: start: 20140819, end: 20140820
  8. CLINDAMYCIN [Suspect]
     Active Substance: CLINDAMYCIN\CLINDAMYCIN PHOSPHATE
     Indication: SEPTIC SHOCK
     Route: 042
     Dates: start: 20140820, end: 20140825
  9. LINEZOLID. [Suspect]
     Active Substance: LINEZOLID
     Indication: SEPTIC SHOCK
     Route: 042
     Dates: start: 20140825, end: 20140829
  10. BENZYLPENICILLIN [Suspect]
     Active Substance: PENICILLIN G
     Indication: SEPTIC SHOCK
     Route: 042
     Dates: start: 20140820, end: 20140825

REACTIONS (2)
  - Rash morbilliform [Not Recovered/Not Resolved]
  - Acute kidney injury [Recovered/Resolved]

NARRATIVE: CASE EVENT DATE: 20140826
